FAERS Safety Report 24222486 (Version 1)
Quarter: 2024Q3

REPORT INFORMATION
  Report Type: Spontaneous
  Country: US (occurrence: US)
  Receive Date: 20240819
  Receipt Date: 20240819
  Transmission Date: 20241017
  Serious: No
  Sender: BAYER
  Company Number: US-BAYER-2024A116748

PATIENT
  Age: 22 Year
  Sex: Female

DRUGS (1)
  1. MIRENA [Suspect]
     Active Substance: LEVONORGESTREL
     Indication: Polycystic ovarian syndrome
     Dosage: 20?G/DAY
     Route: 015
     Dates: start: 201806

REACTIONS (2)
  - Adverse reaction [None]
  - Off label use [None]

NARRATIVE: CASE EVENT DATE: 20180801
